FAERS Safety Report 26036936 (Version 1)
Quarter: 2025Q4

REPORT INFORMATION
  Report Type: Spontaneous
  Country: US (occurrence: None)
  Receive Date: 20251112
  Receipt Date: 20251112
  Transmission Date: 20260117
  Serious: Yes (Other)
  Sender: FDA-CTU
  Company Number: None

PATIENT
  Age: 14 Year
  Sex: Female

DRUGS (1)
  1. SOFDRA [Suspect]
     Active Substance: SOFPIRONIUM BROMIDE
     Indication: Hyperhidrosis
     Dosage: FREQUENCY : DAILY;?
     Route: 061

REACTIONS (6)
  - Vision blurred [None]
  - Dry mouth [None]
  - Headache [None]
  - Rhinitis [None]
  - Cough [None]
  - Application site irritation [None]

NARRATIVE: CASE EVENT DATE: 20251108
